FAERS Safety Report 10207548 (Version 1)
Quarter: 2014Q2

REPORT INFORMATION
  Report Type: Spontaneous
  Country: US (occurrence: None)
  Receive Date: 20140527
  Receipt Date: 20140527
  Transmission Date: 20141212
  Serious: No
  Sender: FDA-Public Use
  Company Number: None

PATIENT
  Age: 53 Year
  Sex: Male

DRUGS (9)
  1. CIPROFLOXACIN [Suspect]
     Indication: SKIN ULCER
     Dates: start: 20121230, end: 20130130
  2. CIPROFLOXACIN [Suspect]
     Indication: OSTEOMYELITIS
     Dates: start: 20121230, end: 20130130
  3. CLINDAMYCIN [Suspect]
     Indication: SKIN ULCER
     Dates: start: 20121230, end: 20130130
  4. CLINDAMYCIN [Suspect]
     Indication: OSTEOMYELITIS
     Dates: start: 20121230, end: 20130130
  5. ASPIRIN [Concomitant]
  6. AMLODIPINE [Concomitant]
  7. GLIPIZIDE [Concomitant]
  8. PRAVASTATIN [Concomitant]
  9. VIAGRA [Concomitant]

REACTIONS (2)
  - Jaundice [None]
  - Cholelithiasis [None]
